FAERS Safety Report 4368890-9 (Version None)
Quarter: 2004Q2

REPORT INFORMATION
  Report Type: 
  Country: None (occurrence: None)
  Receive Date: 20040527
  Receipt Date: 20040507
  Transmission Date: 20050107
  Serious: Yes (Other)
  Sender: FDA-Public Use
  Company Number: US_0404102029

PATIENT
  Age: 81 Year
  Sex: Female

DRUGS (2)
  1. EVISTA [Suspect]
     Indication: OSTEOPOROSIS
     Dosage: 60 MG/1 DAY
     Dates: start: 19991201
  2. MIACALCIN (CALCITONIN, SALOMON) [Concomitant]

REACTIONS (7)
  - BACK PAIN [None]
  - FALL [None]
  - GASTRIC ULCER [None]
  - OSTEOPENIA [None]
  - RENAL FAILURE [None]
  - SPINAL COLUMN STENOSIS [None]
  - SPINAL COMPRESSION FRACTURE [None]
